FAERS Safety Report 18386864 (Version 1)
Quarter: 2020Q4

REPORT INFORMATION
  Report Type: Spontaneous
  Country: AU (occurrence: AU)
  Receive Date: 20201015
  Receipt Date: 20201015
  Transmission Date: 20210114
  Serious: Yes (Other)
  Sender: FDA-Public Use
  Company Number: AU-MYLANLABS-2020M1086954

PATIENT
  Age: 100 Year
  Sex: Female

DRUGS (1)
  1. ARAZIL 10 [Suspect]
     Active Substance: DONEPEZIL HYDROCHLORIDE
     Indication: PRODUCT USED FOR UNKNOWN INDICATION
     Dosage: UNK

REACTIONS (3)
  - Pneumonia aspiration [Unknown]
  - Wrong technique in product usage process [Unknown]
  - Dysphagia [Unknown]
